FAERS Safety Report 24582144 (Version 1)
Quarter: 2024Q4

REPORT INFORMATION
  Report Type: Spontaneous
  Country: US (occurrence: US)
  Receive Date: 20241105
  Receipt Date: 20241105
  Transmission Date: 20250115
  Serious: Yes (Other)
  Sender: BRISTOL-MYERS SQUIBB COMPANY
  Company Number: US-BRISTOL-MYERS SQUIBB COMPANY-2024-168319

PATIENT
  Sex: Male

DRUGS (3)
  1. ADAGRASIB [Suspect]
     Active Substance: ADAGRASIB
     Indication: Renal cell carcinoma
     Dates: start: 20240626
  2. ADAGRASIB [Suspect]
     Active Substance: ADAGRASIB
     Dates: start: 202403
  3. CETUXIMAB [Suspect]
     Active Substance: CETUXIMAB
     Indication: Renal cell carcinoma
     Dates: start: 202403

REACTIONS (2)
  - Diarrhoea [Unknown]
  - Renal failure [Unknown]
